FAERS Safety Report 6861250 (Version 5)
Quarter: 2013Q4

REPORT INFORMATION
  Report Type: Spontaneous
  Country: US (occurrence: US)
  Receive Date: 20081219
  Receipt Date: 20131015
  Transmission Date: 20140711
  Serious: Yes (Hospitalization)
  Sender: FDA-Public Use
  Company Number: US-BIOGENIDEC-2008BI033529

PATIENT
  Age: 47 Year
  Sex: Female

DRUGS (1)
  1. TYSABRI [Suspect]
     Indication: MULTIPLE SCLEROSIS
     Route: 042
     Dates: start: 20080611, end: 20130828

REACTIONS (8)
  - Obesity [Recovered/Resolved]
  - Weight decreased [Recovered/Resolved]
  - Eating disorder [Recovered/Resolved]
  - Electrolyte imbalance [Recovered/Resolved]
  - Postoperative wound infection [Recovered/Resolved]
  - Post procedural haematoma [Recovered/Resolved]
  - Device damage [Recovered/Resolved]
  - Catheter site pain [Recovered/Resolved]
